FAERS Safety Report 6829371-3 (Version None)
Quarter: 2010Q3

REPORT INFORMATION
  Report Type: 
  Country: None (occurrence: None)
  Receive Date: 20100709
  Receipt Date: 20070302
  Transmission Date: 20110219
  Serious: No
  Sender: FDA-Public Use
  Company Number: US-PFIZER INC-2007016945

PATIENT
  Sex: Female
  Weight: 52.62 kg

DRUGS (8)
  1. CHANTIX [Suspect]
     Indication: SMOKING CESSATION THERAPY
     Dates: start: 20070201
  2. ATENOLOL [Concomitant]
  3. HYDROCHLOROTHIAZIDE [Concomitant]
  4. DYNACIRC [Concomitant]
  5. ZOLOFT [Concomitant]
  6. LIPITOR [Concomitant]
  7. ACETYLSALICYLIC ACID [Concomitant]
  8. CLARITIN [Concomitant]

REACTIONS (4)
  - GASTROENTERITIS NOROVIRUS [None]
  - HEADACHE [None]
  - NAUSEA [None]
  - VOMITING [None]
